FAERS Safety Report 8397576-9 (Version None)
Quarter: 2012Q2

REPORT INFORMATION
  Report Type: 
  Country: None (occurrence: None)
  Receive Date: 20120531
  Receipt Date: 20120521
  Transmission Date: 20120825
  Serious: Yes (Life-Threatening, Hospitalization)
  Sender: FDA-Public Use
  Company Number: IE-TEVA-339414USA

PATIENT
  Age: 65 Year
  Sex: Male

DRUGS (27)
  1. LACTULOSE [Concomitant]
     Indication: CONSTIPATION
     Dates: start: 20120323, end: 20120417
  2. HEPARIN-FRACTION, SODIUM SALT [Concomitant]
     Indication: PULMONARY EMBOLISM
     Dates: end: 20120405
  3. IPRATROPIUM BROMIDE [Concomitant]
     Indication: PNEUMONITIS
     Route: 055
     Dates: start: 20120402, end: 20120404
  4. TAMSULOSIN HCL [Concomitant]
     Indication: LOWER URINARY TRACT SYMPTOMS
     Dates: start: 20110810
  5. DOMPERIDONE [Concomitant]
     Indication: PROPHYLAXIS OF NAUSEA AND VOMITING
     Dosage: 30 MILLIEQUIVALENTS;
     Dates: start: 20120324, end: 20120401
  6. ACETAMINOPHEN [Concomitant]
     Indication: BACK PAIN
     Dosage: 4 GRAM;
     Route: 048
     Dates: start: 20090323
  7. CYCLIZINE [Concomitant]
     Indication: PROPHYLAXIS OF NAUSEA AND VOMITING
     Dosage: 150 MILLIGRAM;
     Dates: start: 20120401, end: 20120402
  8. RITUXIMAB [Suspect]
     Indication: NON-HODGKIN'S LYMPHOMA
     Route: 042
     Dates: start: 20120202, end: 20120323
  9. ESOMEPRAZOLE MAGNESIUM [Concomitant]
     Indication: DYSPEPSIA
     Dates: start: 20111114
  10. ALLOPURINOL [Concomitant]
     Indication: GOUT
     Dates: start: 20091209
  11. ALBUTEROL [Concomitant]
     Indication: COUGH
     Route: 055
     Dates: start: 20120328, end: 20120328
  12. OXYCODONE HYDROCHLORIDE [Concomitant]
     Indication: BACK PAIN
     Route: 048
     Dates: start: 20110323
  13. CALCIUM CARBONATE [Concomitant]
     Indication: HYPOCALCAEMIA
     Route: 048
     Dates: start: 20120323
  14. FOLIC ACID [Concomitant]
     Indication: PROPHYLAXIS
     Route: 048
     Dates: start: 20120402
  15. PREDNISOLONE [Concomitant]
     Indication: PNEUMONITIS
     Dosage: 100 MILLIGRAM;
     Route: 048
     Dates: start: 20120328, end: 20120405
  16. LIDOCAINE [Concomitant]
     Indication: BACK PAIN
     Dates: start: 20120323
  17. NULYTELY [Concomitant]
     Indication: CONSTIPATION
     Dates: start: 20120324, end: 20120402
  18. ALPRAZOLAM [Concomitant]
     Indication: TREMOR
     Route: 048
     Dates: start: 20120401, end: 20120401
  19. TREANDA [Suspect]
     Indication: NON-HODGKIN'S LYMPHOMA
     Route: 042
     Dates: start: 20120202, end: 20120423
  20. BISOPROLOL FUMARATE [Concomitant]
     Indication: TACHYCARDIA
     Dates: start: 20120301
  21. BACTRIM [Concomitant]
     Indication: PNEUMONITIS
     Route: 048
     Dates: start: 20120328, end: 20120404
  22. PREGABALIN [Concomitant]
     Indication: BACK PAIN
     Dosage: 100 MILLIGRAM;
     Route: 048
     Dates: start: 20120326, end: 20120403
  23. OXYCODONE HYDROCHLORIDE [Concomitant]
     Route: 048
     Dates: start: 20120323
  24. VALACYCLOVIR HYDROCHLORIDE [Concomitant]
     Indication: ANTIVIRAL PROPHYLAXIS
     Dosage: 500 MILLIGRAM;
     Dates: start: 20110429
  25. CODEINE LINCTUS [Concomitant]
     Indication: COUGH
     Dosage: 30 ML;
     Dates: start: 20120326, end: 20120404
  26. SODIUM CHLORIDE [Concomitant]
     Route: 055
     Dates: start: 20120328, end: 20120329
  27. SENNA ALEXANDRINA [Concomitant]
     Indication: CONSTIPATION
     Route: 048
     Dates: start: 20120324

REACTIONS (1)
  - PULMONARY EMBOLISM [None]
